FAERS Safety Report 9593850 (Version 1)
Quarter: 2013Q3

REPORT INFORMATION
  Report Type: Spontaneous
  Country: US (occurrence: None)
  Receive Date: 20130930
  Receipt Date: 20130930
  Transmission Date: 20140515
  Serious: No
  Sender: FDA-Public Use
  Company Number: 1000045769

PATIENT
  Age: 41 Year
  Sex: Female

DRUGS (4)
  1. LINZESS [Suspect]
     Indication: CONSTIPATION
     Dosage: 290MCG, (290 MCG, 1 IN 1 D), ORAL
     Route: 048
     Dates: start: 20130530
  2. FLUOXETINE (FLUOXETINE) (FLUOXETINE) [Concomitant]
  3. CLONAZEPAM (CLONAZEPAM) (CLONAZEPAM) [Concomitant]
  4. HYDROCHLOROTHIAZIDE (HYDROCHLOROTHIAZIDE) (HYDROCHLOROTHIAZIDE) [Concomitant]

REACTIONS (1)
  - Diarrhoea [None]
